FAERS Safety Report 8554044-9 (Version None)
Quarter: 2012Q3

REPORT INFORMATION
  Report Type: 
  Country: None (occurrence: None)
  Receive Date: 20120731
  Receipt Date: 20120726
  Transmission Date: 20120928
  Serious: Yes (Death)
  Sender: FDA-Public Use
  Company Number: US-CELGENEUS-163-21880-12072892

PATIENT
  Sex: Female

DRUGS (8)
  1. LASIX [Concomitant]
     Dosage: 40 MILLIGRAM
     Route: 067
  2. POTASSIUM CHLORIDE [Concomitant]
     Dosage: 20 MILLIEQUIVALENTS
     Route: 065
  3. NORVASC [Concomitant]
     Dosage: 5 MILLIGRAM
     Route: 065
  4. XANAX [Concomitant]
     Dosage: .5 MILLIGRAM
     Route: 065
  5. TESSALON [Concomitant]
     Dosage: 100 MILLIGRAM
     Route: 065
  6. PREDNISONE [Concomitant]
     Dosage: 30 MILLIGRAM
     Route: 065
  7. AMBIEN [Concomitant]
     Dosage: 10 MILLIGRAM
     Route: 065
  8. REVLIMID [Suspect]
     Indication: LYMPHOMA
     Dosage: 5 MILLIGRAM
     Route: 048
     Dates: start: 20120119, end: 20120404

REACTIONS (1)
  - LYMPHOMA [None]
